FAERS Safety Report 7081950-7 (Version None)
Quarter: 2010Q4

REPORT INFORMATION
  Report Type: 
  Country: None (occurrence: None)
  Receive Date: 20101103
  Receipt Date: 20101022
  Transmission Date: 20110411
  Serious: Yes (Other)
  Sender: FDA-Public Use
  Company Number: BR-PFIZER INC-2010135226

PATIENT
  Age: 39 Year
  Sex: Female
  Weight: 60 kg

DRUGS (2)
  1. GEODON [Suspect]
     Indication: MOOD SWINGS
     Dosage: 40MG DAILY
     Route: 048
     Dates: start: 20100501, end: 20100701
  2. GEODON [Suspect]
     Dosage: 80MG DAILY
     Route: 048
     Dates: start: 20100701

REACTIONS (9)
  - APPETITE DISORDER [None]
  - CHOLINERGIC SYNDROME [None]
  - DRUG INEFFECTIVE [None]
  - FEAR [None]
  - INSOMNIA [None]
  - IRRITABILITY [None]
  - LOGORRHOEA [None]
  - WEIGHT DECREASED [None]
  - WEIGHT INCREASED [None]
